FAERS Safety Report 6632355-1 (Version None)
Quarter: 2010Q1

REPORT INFORMATION
  Report Type: 
  Country: None (occurrence: None)
  Receive Date: 20100310
  Receipt Date: 20100301
  Transmission Date: 20100710
  Serious: Yes (Hospitalization)
  Sender: FDA-Public Use
  Company Number: 2010AL001223

PATIENT
  Age: 57 Year
  Sex: Female

DRUGS (2)
  1. PHENYTOIN [Suspect]
     Indication: EPILEPSY
     Dosage: 700 MG;QD;PO
     Route: 048
     Dates: end: 20100201
  2. PHENYTOIN [Concomitant]

REACTIONS (2)
  - DIZZINESS [None]
  - DRUG TOXICITY [None]
